FAERS Safety Report 9512400 (Version 1)
Quarter: 2013Q1

REPORT INFORMATION
  Report Type: Spontaneous
  Country: US (occurrence: None)
  Receive Date: 20130305
  Receipt Date: 20130305
  Transmission Date: 20140127
  Serious: Yes (Other)
  Sender: FDA-Public Use
  Company Number: 163-21880-12103130

PATIENT
  Sex: 0

DRUGS (2)
  1. REVLIMID (LENALIDOMIDE) (CAPSULES) [Suspect]
     Indication: PLASMA CELL MYELOMA
     Route: 048
  2. ANTICOAGULANTS (ANTITHROMBOTIC AGENTS) [Concomitant]

REACTIONS (1)
  - Embolism [None]
